FAERS Safety Report 15548629 (Version 1)
Quarter: 2018Q4

REPORT INFORMATION
  Report Type: Spontaneous
  Country: US (occurrence: US)
  Receive Date: 20181025
  Receipt Date: 20181025
  Transmission Date: 20190205
  Serious: No
  Sender: FDA-Public Use
  Company Number: US-TRIS PHARMA, INC.-2018TRISPO00785

PATIENT

DRUGS (2)
  1. HYDROCODONE + APAP [Suspect]
     Active Substance: ACETAMINOPHEN\HYDROCODONE BITARTRATE
     Dosage: 2-3 TABLETS PER DAY
     Route: 065
  2. HYDROCODONE + APAP [Suspect]
     Active Substance: ACETAMINOPHEN\HYDROCODONE BITARTRATE
     Indication: PAIN
     Dosage: 5 TABLETS PER DAY
     Route: 065

REACTIONS (6)
  - Drug ineffective [Unknown]
  - Dyspnoea exertional [Recovering/Resolving]
  - Balance disorder [Recovering/Resolving]
  - Palpitations [Recovering/Resolving]
  - Sluggishness [Recovering/Resolving]
  - Pain [Recovering/Resolving]
